FAERS Safety Report 6355333-9 (Version None)
Quarter: 2009Q3

REPORT INFORMATION
  Report Type: 
  Country: None (occurrence: None)
  Receive Date: 20090914
  Receipt Date: 20090903
  Transmission Date: 20100115
  Serious: Yes (Hospitalization)
  Sender: FDA-Public Use
  Company Number: JP-NOVOPROD-233455

PATIENT
  Age: 29 Year
  Sex: Female
  Weight: 46 kg

DRUGS (10)
  1. NOVOLIN N [Suspect]
     Indication: TYPE 1 DIABETES MELLITUS
     Dosage: 4 IU, QD
     Route: 058
     Dates: start: 20030924
  2. NOVOLIN N [Suspect]
     Dosage: 6 IU, QD
     Dates: start: 20031003
  3. NOVORAPID CHU FLEXPEN [Concomitant]
     Indication: TYPE 1 DIABETES MELLITUS
     Dosage: 4 + 4 + 4 IU QD
     Route: 058
     Dates: start: 20030924
  4. NOVORAPID CHU FLEXPEN [Concomitant]
     Dosage: 6 + 6 + 6 IU QD
     Dates: start: 20031003
  5. HUMULIN R [Concomitant]
     Indication: TYPE 1 DIABETES MELLITUS
     Dosage: UNK, UNK
     Route: 042
     Dates: start: 20031014, end: 20031029
  6. HUMULIN R [Concomitant]
     Dosage: 4 + 4 + 4 IU, QD
     Dates: start: 20031023, end: 20031029
  7. HUMULIN R [Concomitant]
     Dates: start: 20031030
  8. NOVOLIN R [Concomitant]
     Indication: TYPE 1 DIABETES MELLITUS
     Dates: start: 20031029, end: 20031030
  9. HUMACART R [Concomitant]
  10. HUMACART N [Concomitant]

REACTIONS (3)
  - GALLBLADDER OEDEMA [None]
  - HEPATIC ENZYME INCREASED [None]
  - TYPE IV HYPERSENSITIVITY REACTION [None]
